FAERS Safety Report 10042493 (Version 1)
Quarter: 2014Q1

REPORT INFORMATION
  Report Type: Spontaneous
  Country: DK (occurrence: DK)
  Receive Date: 20140327
  Receipt Date: 20140327
  Transmission Date: 20141002
  Serious: Yes (Other)
  Sender: FDA-Public Use
  Company Number: PHHY2014DK036590

PATIENT
  Age: 80 Year
  Sex: Female

DRUGS (2)
  1. LANSOPRAZOLE [Suspect]
  2. PREDNISOLONE [Concomitant]
     Dosage: 30 MG, UNK

REACTIONS (6)
  - Subacute cutaneous lupus erythematosus [Recovered/Resolved]
  - Rash pruritic [Recovered/Resolved]
  - Dermatitis [Recovered/Resolved]
  - Erythema annulare [Recovered/Resolved]
  - Skin lesion [Recovered/Resolved]
  - Skin necrosis [Recovered/Resolved]
